FAERS Safety Report 13938205 (Version 2)
Quarter: 2017Q4

REPORT INFORMATION
  Report Type: Report from Study
  Country: CO (occurrence: CO)
  Receive Date: 20170905
  Receipt Date: 20171101
  Transmission Date: 20180320
  Serious: Yes (Other)
  Sender: FDA-Public Use
  Company Number: CO-REGENERON PHARMACEUTICALS, INC.-2017-21196

PATIENT

DRUGS (1)
  1. EYLEA [Suspect]
     Active Substance: AFLIBERCEPT
     Indication: RETINAL VEIN OCCLUSION
     Dosage: 2 MG, Q1MON
     Route: 031
     Dates: start: 20130104

REACTIONS (5)
  - Vision blurred [Not Recovered/Not Resolved]
  - Blindness [Unknown]
  - Blindness unilateral [Not Recovered/Not Resolved]
  - Eye inflammation [Not Recovered/Not Resolved]
  - Vision blurred [Unknown]

NARRATIVE: CASE EVENT DATE: 201708
